FAERS Safety Report 7675193-3 (Version None)
Quarter: 2011Q3

REPORT INFORMATION
  Report Type: 
  Country: None (occurrence: None)
  Receive Date: 20110810
  Receipt Date: 20110810
  Transmission Date: 20111222
  Serious: Yes (Other)
  Sender: FDA-Public Use
  Company Number: None

PATIENT
  Age: 71 Year
  Sex: Female
  Weight: 81.646 kg

DRUGS (1)
  1. PRADAXA [Suspect]
     Indication: ATRIAL FIBRILLATION
     Route: 048

REACTIONS (8)
  - MALAISE [None]
  - HEART RATE DECREASED [None]
  - ASTHENIA [None]
  - HYPOTENSION [None]
  - HYPERHIDROSIS [None]
  - PRESYNCOPE [None]
  - NAUSEA [None]
  - DEFAECATION URGENCY [None]
